FAERS Safety Report 8789595 (Version 1)
Quarter: 2012Q4

REPORT INFORMATION
  Report Type: Spontaneous
  Country: US (occurrence: None)
  Receive Date: 20120910
  Receipt Date: 20120910
  Transmission Date: 20130627
  Serious: Yes (Other)
  Sender: FDA-Public Use
  Company Number: None

PATIENT
  Sex: Male
  Weight: 78.02 kg

DRUGS (2)
  1. PROPOFOL [Suspect]
     Indication: CYSTOSCOPY
     Dosage: Once vein
     Dates: start: 20120731
  2. PROPOFOL [Suspect]
     Indication: CYSTOSCOPY
     Dates: start: 20120208

REACTIONS (8)
  - Confusional state [None]
  - Agitation [None]
  - Anxiety [None]
  - Injection site pain [None]
  - Haemangioma [None]
  - Skin disorder [None]
  - Injection site reaction [None]
  - Sensory loss [None]
